FAERS Safety Report 14607265 (Version 5)
Quarter: 2019Q2

REPORT INFORMATION
  Report Type: Spontaneous
  Country: US (occurrence: US)
  Receive Date: 20180307
  Receipt Date: 20190509
  Transmission Date: 20190711
  Serious: Yes (Death, Other)
  Sender: FDA-Public Use
  Company Number: US-PFIZER INC-2018091692

PATIENT
  Age: 69 Year
  Sex: Female

DRUGS (1)
  1. IBRANCE [Suspect]
     Active Substance: PALBOCICLIB
     Indication: BREAST CANCER METASTATIC
     Dosage: 125 MG, UNK
     Dates: start: 20171101

REACTIONS (4)
  - Fatigue [Recovering/Resolving]
  - Memory impairment [Unknown]
  - Feeling abnormal [Unknown]
  - Death [Fatal]

NARRATIVE: CASE EVENT DATE: 20190126
